FAERS Safety Report 4844933-0 (Version None)
Quarter: 2005Q4

REPORT INFORMATION
  Report Type: 
  Country: None (occurrence: None)
  Receive Date: 20051205
  Receipt Date: 20051123
  Transmission Date: 20060501
  Serious: Yes (Other)
  Sender: FDA-Public Use
  Company Number: US-BRISTOL-MYERS SQUIBB COMPANY-13193396

PATIENT
  Age: 11 Year
  Sex: Female

DRUGS (3)
  1. DIDANOSINE [Suspect]
     Indication: HIV INFECTION
  2. STAVUDINE [Suspect]
     Indication: HIV INFECTION
  3. AMPRENAVIR [Suspect]
     Indication: HIV INFECTION

REACTIONS (4)
  - ACANTHOSIS NIGRICANS [None]
  - HYPERGLYCAEMIA [None]
  - HYPERINSULINAEMIA [None]
  - HYPERTRIGLYCERIDAEMIA [None]
